FAERS Safety Report 24426901 (Version 3)
Quarter: 2024Q4

REPORT INFORMATION
  Report Type: Spontaneous
  Country: US (occurrence: US)
  Receive Date: 20241011
  Receipt Date: 20241030
  Transmission Date: 20250114
  Serious: No
  Sender: BIOGEN
  Company Number: US-BIOGEN-2024BI01285187

PATIENT
  Sex: Male

DRUGS (3)
  1. VUMERITY [Suspect]
     Active Substance: DIROXIMEL FUMARATE
     Indication: Multiple sclerosis
     Route: 050
     Dates: start: 20240907, end: 20240913
  2. VUMERITY [Suspect]
     Active Substance: DIROXIMEL FUMARATE
     Route: 050
     Dates: start: 20240914
  3. FAMOTIDINE [Concomitant]
     Active Substance: FAMOTIDINE
     Route: 050

REACTIONS (3)
  - Gastritis [Recovered/Resolved]
  - Flushing [Recovered/Resolved]
  - Abdominal pain upper [Unknown]
